FAERS Safety Report 17721665 (Version 3)
Quarter: 2020Q3

REPORT INFORMATION
  Report Type: Report from Study
  Country: ES (occurrence: ES)
  Receive Date: 20200429
  Receipt Date: 20200820
  Transmission Date: 20201102
  Serious: Yes (Hospitalization)
  Sender: FDA-Public Use
  Company Number: ES-ROCHE-2567784

PATIENT
  Age: 75 Year
  Sex: Male
  Weight: 62.5 kg

DRUGS (13)
  1. PANTOPRAZOLE [Concomitant]
     Active Substance: PANTOPRAZOLE
     Indication: GASTROINTESTINAL DISORDER PROPHYLAXIS
     Dates: start: 20200131
  2. RESINCALCIO [Concomitant]
     Active Substance: CALCIUM POLYSTYRENE SULFONATE
     Indication: CHRONIC KIDNEY DISEASE
     Dates: start: 20200326, end: 20200331
  3. NORADRENALINE [Concomitant]
     Active Substance: NOREPINEPHRINE
     Indication: HYPOTENSION
     Dosage: 3 ML/H
     Dates: start: 20200311, end: 20200311
  4. RO7122290 (FAP?4?1BBL MAB) [Suspect]
     Active Substance: INVESTIGATIONAL PRODUCT
     Indication: NEOPLASM
     Dosage: DATE OF MOST RECENT DOSE OF RO7122290 PRIOR TO AE/SAE ONSET 30/DEC/2019 (260 MG) AT 11:59?START DATE
     Route: 042
     Dates: start: 20190801
  5. ALBUMIN [Concomitant]
     Active Substance: ALBUMIN HUMAN
     Indication: HYPOALBUMINAEMIA
     Dates: start: 20200317
  6. HIBOR [Concomitant]
     Indication: THROMBOSIS PROPHYLAXIS
     Dates: start: 20200317, end: 20200328
  7. CEFAZOLINA [Concomitant]
     Active Substance: CEFAZOLIN SODIUM
     Indication: INFECTION PROPHYLAXIS
     Dates: start: 20200331, end: 20200331
  8. ALLOPURINOL. [Concomitant]
     Active Substance: ALLOPURINOL
     Indication: HYPERURICAEMIA
  9. CEFUROXIMA [Concomitant]
     Indication: URINARY TRACT INFECTION
     Dates: start: 20200313, end: 20200315
  10. ALLOPURINOL. [Concomitant]
     Active Substance: ALLOPURINOL
     Indication: HYPERURICAEMIA
  11. ATEZOLIZUMAB. [Suspect]
     Active Substance: ATEZOLIZUMAB
     Indication: NEOPLASM
     Dosage: START DATE OF MOST RECENT DOSE OF ATEZOLIZUMAB PRIOR TO AE ON 09/MAR/2020 (270 ML): 1200MG (1:19PM)
     Route: 042
     Dates: start: 20190819
  12. SEPTRIN FORTE [Concomitant]
     Active Substance: SULFAMETHOXAZOLE\TRIMETHOPRIM
     Indication: PROPHYLAXIS URINARY TRACT INFECTION
     Dates: start: 20200318
  13. HIDROFEROL [Concomitant]
     Active Substance: CALCIFEDIOL
     Indication: CHRONIC KIDNEY DISEASE
     Dates: start: 20200401

REACTIONS (2)
  - Pyrexia [Recovered/Resolved]
  - Oedema peripheral [Recovered/Resolved]

NARRATIVE: CASE EVENT DATE: 20200310
